FAERS Safety Report 18565172 (Version 2)
Quarter: 2020Q4

REPORT INFORMATION
  Report Type: Report from Study
  Country: US (occurrence: US)
  Receive Date: 20201201
  Receipt Date: 20201204
  Transmission Date: 20210114
  Serious: No
  Sender: FDA-Public Use
  Company Number: NVSC2020US311018

PATIENT
  Age: 10 Year
  Sex: Male

DRUGS (1)
  1. OMNITROPE [Suspect]
     Active Substance: SOMATROPIN
     Indication: GROWTH HORMONE DEFICIENCY
     Dosage: 1 MG, QD
     Route: 058
     Dates: start: 20201118, end: 20201118

REACTIONS (4)
  - Injection site pruritus [Unknown]
  - Incorrect dose administered [Unknown]
  - Device issue [Unknown]
  - Pain [Unknown]

NARRATIVE: CASE EVENT DATE: 20201118
